FAERS Safety Report 12284968 (Version 1)
Quarter: 2016Q2

REPORT INFORMATION
  Report Type: Spontaneous
  Country: US (occurrence: US)
  Receive Date: 20160420
  Receipt Date: 20160420
  Transmission Date: 20160815
  Serious: Yes (Hospitalization)
  Sender: FDA-Public Use
  Company Number: US-BEH-2016061341

PATIENT
  Sex: Male
  Weight: 60 kg

DRUGS (35)
  1. NOVOLOG [Concomitant]
     Active Substance: INSULIN ASPART
  2. FLUCONAZOLE. [Concomitant]
     Active Substance: FLUCONAZOLE
  3. MAGNESIUM OXIDE. [Concomitant]
     Active Substance: MAGNESIUM OXIDE
  4. CALCIUM +D [Concomitant]
     Active Substance: CALCIUM\VITAMIN D
  5. BIOTIN [Concomitant]
     Active Substance: BIOTIN
  6. DOXYCYLINE [Concomitant]
     Active Substance: DOXYCYCLINE
  7. SODIUM CHLORIDE. [Concomitant]
     Active Substance: SODIUM CHLORIDE
  8. LEVEMIR [Concomitant]
     Active Substance: INSULIN DETEMIR
  9. VENTOLIN [Concomitant]
     Active Substance: ALBUTEROL SULFATE
  10. OXACILLIN [Concomitant]
     Active Substance: OXACILLIN SODIUM
  11. GUAIFENESIN-CODEINE [Concomitant]
  12. SINGULAIR [Concomitant]
     Active Substance: MONTELUKAST SODIUM
  13. OMEGA 3 [Concomitant]
     Active Substance: OMEGA-3 FATTY ACIDS
  14. SIROLIMUS. [Concomitant]
     Active Substance: SIROLIMUS
  15. PRIVIGEN [Suspect]
     Active Substance: HUMAN IMMUNOGLOBULIN G
     Indication: IMMUNODEFICIENCY COMMON VARIABLE
     Route: 042
     Dates: start: 20151209
  16. PRIVIGEN [Suspect]
     Active Substance: HUMAN IMMUNOGLOBULIN G
     Route: 042
     Dates: start: 20151209
  17. SYMBICORT [Concomitant]
     Active Substance: BUDESONIDE\FORMOTEROL FUMARATE DIHYDRATE
  18. CENTRUM [Concomitant]
     Active Substance: VITAMINS
  19. ASPIRIN. [Concomitant]
     Active Substance: ASPIRIN
  20. COUMADIN [Concomitant]
     Active Substance: WARFARIN SODIUM
  21. LIDOCAINE. [Concomitant]
     Active Substance: LIDOCAINE
  22. IRON [Concomitant]
     Active Substance: IRON
  23. ACETAMINOPHEN. [Concomitant]
     Active Substance: ACETAMINOPHEN
  24. OXYGEN. [Concomitant]
     Active Substance: OXYGEN
  25. SOTALOL. [Concomitant]
     Active Substance: SOTALOL
  26. PREDNISONE. [Concomitant]
     Active Substance: PREDNISONE
  27. VITAMIN D [Concomitant]
     Active Substance: CHOLECALCIFEROL
  28. HEPARIN [Concomitant]
     Active Substance: HEPARIN SODIUM
  29. PRILOSEC [Concomitant]
     Active Substance: OMEPRAZOLE MAGNESIUM
  30. FLUTICASONE [Concomitant]
     Active Substance: FLUTICASONE\FLUTICASONE PROPIONATE
  31. RESTASIS [Concomitant]
     Active Substance: CYCLOSPORINE
  32. EPIPEN [Concomitant]
     Active Substance: EPINEPHRINE
  33. VALACYCLOVIR [Concomitant]
     Active Substance: VALACYCLOVIR HYDROCHLORIDE
  34. EYE DROPS [Concomitant]
     Active Substance: TETRAHYDROZOLINE HYDROCHLORIDE
  35. ATOVAQUONE. [Concomitant]
     Active Substance: ATOVAQUONE

REACTIONS (3)
  - Lethargy [Unknown]
  - Dyspnoea [Unknown]
  - Sepsis [Unknown]
